FAERS Safety Report 14517207 (Version 2)
Quarter: 2021Q3

REPORT INFORMATION
  Report Type: Report from Study
  Country: US (occurrence: US)
  Receive Date: 20180212
  Receipt Date: 20210914
  Transmission Date: 20211014
  Serious: Yes (Hospitalization)
  Sender: FDA-Public Use
  Company Number: US-SHIRE-US201804265

PATIENT
  Age: 39 Year
  Sex: Female
  Weight: 66.17 kg

DRUGS (10)
  1. TEDUGLUTIDE [Suspect]
     Active Substance: TEDUGLUTIDE
     Dosage: 0.269 MILLILITER, QD
     Route: 058
  2. TEDUGLUTIDE [Suspect]
     Active Substance: TEDUGLUTIDE
     Indication: SHORT-BOWEL SYNDROME
     Dosage: 0.38 (UNK UNIT), QD
     Route: 065
     Dates: start: 20150607
  3. TEDUGLUTIDE [Suspect]
     Active Substance: TEDUGLUTIDE
     Dosage: 0.269 MILLILITER, QD
     Route: 058
  4. LOVENOX [Concomitant]
     Active Substance: ENOXAPARIN SODIUM
     Dosage: 100 MILLIGRAM PER MILLILITRE
     Route: 065
  5. TEDUGLUTIDE [Suspect]
     Active Substance: TEDUGLUTIDE
     Indication: SHORT-BOWEL SYNDROME
     Dosage: 0.38 (UNK UNIT), QD
     Route: 065
     Dates: start: 20150607
  6. TEDUGLUTIDE [Suspect]
     Active Substance: TEDUGLUTIDE
     Dosage: 0.269 MILLILITER, QD
     Route: 058
  7. TEDUGLUTIDE [Suspect]
     Active Substance: TEDUGLUTIDE
     Indication: SHORT-BOWEL SYNDROME
     Dosage: 0.38 (UNK UNIT), QD
     Route: 065
     Dates: start: 20150607
  8. TEDUGLUTIDE [Suspect]
     Active Substance: TEDUGLUTIDE
     Dosage: 0.269 MILLILITER, QD
     Route: 058
  9. TEDUGLUTIDE [Suspect]
     Active Substance: TEDUGLUTIDE
     Indication: SHORT-BOWEL SYNDROME
     Dosage: 0.38 (UNK UNIT), QD
     Route: 065
     Dates: start: 20150607
  10. PROTONIX [Concomitant]
     Active Substance: PANTOPRAZOLE SODIUM
     Dosage: 40 MILLIGRAM
     Route: 065

REACTIONS (4)
  - Headache [Unknown]
  - Nausea [Unknown]
  - Hospitalisation [Unknown]
  - Vomiting [Unknown]

NARRATIVE: CASE EVENT DATE: 20150607
